FAERS Safety Report 7559724-X (Version None)
Quarter: 2011Q2

REPORT INFORMATION
  Report Type: 
  Country: None (occurrence: None)
  Receive Date: 20110621
  Receipt Date: 20110617
  Transmission Date: 20111010
  Serious: Yes (Life-Threatening, Hospitalization)
  Sender: FDA-Public Use
  Company Number: IT-ROCHE-780107

PATIENT
  Sex: Male

DRUGS (3)
  1. NIMOTOP [Concomitant]
     Route: 065
  2. ROCEPHIN [Suspect]
     Dosage: FREQUENCY: TOTAL
     Route: 030
     Dates: start: 20110518, end: 20110518
  3. ASPIRIN [Concomitant]
     Route: 065

REACTIONS (2)
  - SHOCK [None]
  - FEELING HOT [None]
